FAERS Safety Report 8179381-1 (Version None)
Quarter: 2012Q1

REPORT INFORMATION
  Report Type: 
  Country: None (occurrence: None)
  Receive Date: 20120302
  Receipt Date: 20120221
  Transmission Date: 20120608
  Serious: Yes (Hospitalization, Other)
  Sender: FDA-Public Use
  Company Number: US-JNJFOC-20120105715

PATIENT
  Sex: Male

DRUGS (6)
  1. PREDNISOLONE [Concomitant]
     Route: 048
  2. RISPERIDONE [Suspect]
     Indication: MILD MENTAL RETARDATION
     Dosage: 0.25 MG EVERY MORNING AND 1 MG EVERY EVENING  ONLY ONE DOSE GIVEN
     Route: 048
     Dates: start: 20110108
  3. FINGOLIMOD [Interacting]
     Indication: MULTIPLE SCLEROSIS RELAPSE
     Route: 065
  4. METHYLPREDNISOLONE [Concomitant]
     Indication: MULTIPLE SCLEROSIS
     Dosage: 1 G DAILY FOR 3 DAYS
     Route: 042
  5. PREDNISONE TAB [Concomitant]
     Route: 065
     Dates: start: 20110108, end: 20110115
  6. SOLU-MEDROL [Concomitant]
     Route: 042
     Dates: start: 20110105, end: 20110108

REACTIONS (7)
  - DRUG INTERACTION [None]
  - CARDIAC ARREST [None]
  - UNRESPONSIVE TO STIMULI [None]
  - BRADYCARDIA [None]
  - MALAISE [None]
  - CONVULSION [None]
  - NAUSEA [None]
